FAERS Safety Report 16733100 (Version 1)
Quarter: 2019Q3

REPORT INFORMATION
  Report Type: Spontaneous
  Country: JP (occurrence: JP)
  Receive Date: 20190823
  Receipt Date: 20190823
  Transmission Date: 20191005
  Serious: Yes (Hospitalization, Disabling, Other)
  Sender: FDA-Public Use
  Company Number: JP-REGENERON PHARMACEUTICALS, INC.-2019-45007

PATIENT

DRUGS (6)
  1. EYLEA [Suspect]
     Active Substance: AFLIBERCEPT
     Dosage: 2 MG, ONCE LEFT EYE
     Route: 031
     Dates: start: 20190508, end: 20190508
  2. TELMISARTAN. [Concomitant]
     Active Substance: TELMISARTAN
     Indication: PRODUCT USED FOR UNKNOWN INDICATION
     Dosage: DAILY DOSE 80 MG
     Route: 048
  3. BAYASPIRIN [Concomitant]
     Active Substance: ASPIRIN
     Indication: THROMBOTIC CEREBRAL INFARCTION
     Route: 048
  4. GASTER [Concomitant]
     Active Substance: FAMOTIDINE
     Indication: PRODUCT USED FOR UNKNOWN INDICATION
     Dosage: DAILY DOSE 10 MG
     Route: 048
  5. EYLEA [Suspect]
     Active Substance: AFLIBERCEPT
     Dosage: 2 MG, ONCE LEFT EYE
     Route: 031
     Dates: start: 20190610, end: 20190610
  6. EYLEA [Suspect]
     Active Substance: AFLIBERCEPT
     Indication: AGE-RELATED MACULAR DEGENERATION
     Dosage: 2 MG, ONCE LEFT EYE
     Route: 031
     Dates: start: 20190410, end: 20190410

REACTIONS (6)
  - Hypoaesthesia [Unknown]
  - Cerebral infarction [Unknown]
  - Thrombotic cerebral infarction [Recovered/Resolved with Sequelae]
  - Carotid artery stenosis [Unknown]
  - Cerebral atrophy [Unknown]
  - Monoplegia [Unknown]

NARRATIVE: CASE EVENT DATE: 20190701
